FAERS Safety Report 25245710 (Version 1)
Quarter: 2025Q2

REPORT INFORMATION
  Report Type: Spontaneous
  Country: US (occurrence: None)
  Receive Date: 20250427
  Receipt Date: 20250427
  Transmission Date: 20250716
  Serious: No
  Sender: FDA-CTU
  Company Number: None

PATIENT
  Age: 24 Year
  Sex: Male
  Weight: 55.7 kg

DRUGS (1)
  1. DOXORUBICIN HYDROCHLORIDE [Suspect]
     Active Substance: DOXORUBICIN HYDROCHLORIDE
     Indication: Kaposi^s sarcoma
     Route: 041
     Dates: start: 20250219, end: 20250219

REACTIONS (4)
  - Infusion related reaction [None]
  - Dyspnoea [None]
  - Chest pain [None]
  - Cardio-respiratory arrest [None]

NARRATIVE: CASE EVENT DATE: 20250219
